FAERS Safety Report 4627359-4 (Version None)
Quarter: 2005Q2

REPORT INFORMATION
  Report Type: 
  Country: None (occurrence: None)
  Receive Date: 20050405
  Receipt Date: 20050328
  Transmission Date: 20051028
  Serious: Yes (Other)
  Sender: FDA-Public Use
  Company Number: 2005AL001208

PATIENT
  Sex: Female

DRUGS (3)
  1. PHENYTOIN [Suspect]
     Indication: CONVULSION
     Dosage: 300 MG ;QD; PO
     Route: 048
     Dates: start: 20040801
  2. PHENOBARBITAL [Concomitant]
  3. CLONAZEPAM [Concomitant]

REACTIONS (5)
  - COMA [None]
  - CONVULSION [None]
  - DRUG LEVEL INCREASED [None]
  - DYSPNOEA [None]
  - PHARMACEUTICAL PRODUCT COMPLAINT [None]
